FAERS Safety Report 6123186-X (Version None)
Quarter: 2009Q1

REPORT INFORMATION
  Report Type: 
  Country: None (occurrence: None)
  Receive Date: 20090318
  Receipt Date: 20090311
  Transmission Date: 20090719
  Serious: Yes (Death, Hospitalization, Other)
  Sender: FDA-Public Use
  Company Number: PHHY2009BR08710

PATIENT
  Age: 84 Year
  Sex: Female

DRUGS (7)
  1. FORASEQ [Suspect]
     Indication: CHRONIC OBSTRUCTIVE PULMONARY DISEASE
     Dosage: 12/400 MCG
     Dates: start: 20040101
  2. TRILEPTAL [Suspect]
     Indication: PAIN
     Dosage: UNK
     Dates: start: 20060101
  3. EXELON [Concomitant]
     Dosage: 18 MG/10CM2
     Route: 062
  4. EXELON [Concomitant]
     Dosage: 9 MG/5CM2, ONCE DAILY
     Route: 062
     Dates: start: 20081101
  5. EXELON [Concomitant]
     Dosage: 48MG/10CM2, ONCE DAILY
     Route: 062
  6. OXYGEN THERAPY [Concomitant]
  7. SPIRIVA [Concomitant]
     Indication: LUNG DISORDER
     Dosage: UNK
     Dates: start: 20080101

REACTIONS (29)
  - ANOREXIA [None]
  - ASTHENIA [None]
  - ATELECTASIS [None]
  - BEDRIDDEN [None]
  - BLOOD TEST ABNORMAL [None]
  - BRAIN HYPOXIA [None]
  - BRAIN INJURY [None]
  - CHRONIC OBSTRUCTIVE PULMONARY DISEASE [None]
  - CONCOMITANT DISEASE AGGRAVATED [None]
  - CONDITION AGGRAVATED [None]
  - CONSTIPATION [None]
  - DECREASED APPETITE [None]
  - DEMENTIA WITH LEWY BODIES [None]
  - ENEMA ADMINISTRATION [None]
  - ERYTHEMA [None]
  - FALL [None]
  - HYPERTENSION [None]
  - LUNG DISORDER [None]
  - NERVOUS SYSTEM DISORDER [None]
  - ORAL DISCHARGE [None]
  - OXYGEN CONSUMPTION DECREASED [None]
  - PAIN [None]
  - PARKINSON'S DISEASE [None]
  - PNEUMONIA [None]
  - RESPIRATORY FAILURE [None]
  - RHINORRHOEA [None]
  - SPINAL FRACTURE [None]
  - URINARY TRACT INFECTION [None]
  - VOMITING [None]
